FAERS Safety Report 8941510 (Version 3)
Quarter: 2015Q1

REPORT INFORMATION
  Report Type: Report from Study
  Country: US (occurrence: US)
  Receive Date: 20121203
  Receipt Date: 20150324
  Transmission Date: 20150721
  Serious: Yes (Death, Other)
  Sender: FDA-Public Use
  Company Number: US-ASTELLAS-2012US011608

PATIENT
  Age: 67 Year
  Sex: Male

DRUGS (1)
  1. ERLOTINIB [Suspect]
     Active Substance: ERLOTINIB
     Indication: LUNG NEOPLASM MALIGNANT
     Route: 048

REACTIONS (4)
  - Chronic obstructive pulmonary disease [Fatal]
  - Atrial fibrillation [Fatal]
  - Metabolic acidosis [Fatal]
  - Septic shock [Fatal]

NARRATIVE: CASE EVENT DATE: 20121111
